FAERS Safety Report 8543455-3 (Version None)
Quarter: 2012Q3

REPORT INFORMATION
  Report Type: 
  Country: None (occurrence: None)
  Receive Date: 20120727
  Receipt Date: 20120724
  Transmission Date: 20120928
  Serious: Yes (Death)
  Sender: FDA-Public Use
  Company Number: PHHY2012CA063019

PATIENT
  Sex: Male

DRUGS (3)
  1. CLOZARIL [Suspect]
     Indication: SCHIZOPHRENIA
     Dosage: 250 MG, UNK
     Route: 048
     Dates: start: 20000907
  2. RISPERIDONE [Concomitant]
     Dosage: 1 MG, QD
     Route: 048
  3. ESCITALOPRAM [Concomitant]
     Dosage: 10 MG, QD
     Route: 048

REACTIONS (2)
  - DEATH [None]
  - METABOLIC SYNDROME [None]
